FAERS Safety Report 5104327-X (Version None)
Quarter: 2006Q3

REPORT INFORMATION
  Report Type: 
  Country: None (occurrence: None)
  Receive Date: 20060912
  Receipt Date: 20060912
  Transmission Date: 20061208
  Serious: Yes (Life-Threatening, Hospitalization)
  Sender: FDA-Public Use
  Company Number: None

PATIENT
  Sex: Male

DRUGS (20)
  1. NAFCILLIN SODIUM [Suspect]
     Indication: INFECTION
     Dosage: 12 GRAMS  DAILY  IV
     Route: 042
     Dates: start: 20060429, end: 20060512
  2. PIPERACILLIN AND TAZOBACTAM [Suspect]
     Indication: INFECTION
     Dosage: 4.5 GRAMS   Q 8 H   IV
     Route: 042
     Dates: start: 20060513, end: 20060520
  3. APAP TAB [Concomitant]
  4. ALBUTEROL [Concomitant]
  5. ASPIRIN [Concomitant]
  6. ATENOLOL [Concomitant]
  7. ATORVASTATIN [Concomitant]
  8. CLONIDINE [Concomitant]
  9. DARBEPOETIN [Concomitant]
  10. DOCUSATE [Concomitant]
  11. FERROUS SULFATE TAB [Concomitant]
  12. FINASTERIDE [Concomitant]
  13. HEPARIN [Concomitant]
  14. INSULIN [Concomitant]
  15. IPRATROPIUM BROMIDE [Concomitant]
  16. NEPHROCAP [Concomitant]
  17. OXYCODONE HCL [Concomitant]
  18. PREDNISONE [Concomitant]
  19. PYRIDOXINE HCL [Concomitant]
  20. TERAZOSIN HCL [Concomitant]

REACTIONS (1)
  - SKIN EXFOLIATION [None]
